FAERS Safety Report 4772763-7 (Version None)
Quarter: 2005Q3

REPORT INFORMATION
  Report Type: 
  Country: None (occurrence: None)
  Receive Date: 20050919
  Receipt Date: 20050914
  Transmission Date: 20060218
  Serious: Yes (Other)
  Sender: FDA-Public Use
  Company Number: US-GLAXOSMITHKLINE-A0574255A

PATIENT
  Age: 53 Year
  Sex: Female

DRUGS (3)
  1. ADVAIR DISKUS 100/50 [Suspect]
     Indication: ASTHMA
     Route: 055
     Dates: start: 20050910
  2. SINGULAIR [Concomitant]
  3. ALBUTEROL [Concomitant]

REACTIONS (6)
  - ASTHENIA [None]
  - ASTHMA [None]
  - DYSPNOEA [None]
  - HYPERSOMNIA [None]
  - PALLOR [None]
  - PHARMACEUTICAL PRODUCT COMPLAINT [None]
